FAERS Safety Report 8554148-0 (Version None)
Quarter: 2012Q3

REPORT INFORMATION
  Report Type: 
  Country: None (occurrence: None)
  Receive Date: 20120731
  Receipt Date: 20120727
  Transmission Date: 20120928
  Serious: Yes (Life-Threatening, Hospitalization, Disabling)
  Sender: FDA-Public Use
  Company Number: PHHY2012CA065436

PATIENT
  Age: 56 Year
  Sex: Female
  Weight: 69 kg

DRUGS (9)
  1. METFORMIN HYDROCHLORIDE [Concomitant]
     Route: 048
  2. ESOMEPRAZOLE [Concomitant]
     Route: 048
  3. VITAMIN B-12 [Concomitant]
     Route: 048
  4. RASILEZ [Suspect]
     Dosage: 1 DF, QD
     Route: 048
  5. IRBESARTAN [Suspect]
     Dosage: 1 DF, QD
     Route: 048
  6. ASPIRIN [Concomitant]
     Route: 048
  7. JANUVIA [Concomitant]
     Route: 048
  8. LIPITOR [Concomitant]
     Route: 048
  9. NORVASC [Concomitant]
     Route: 048

REACTIONS (4)
  - ANXIETY [None]
  - MUSCULAR WEAKNESS [None]
  - CONFUSIONAL STATE [None]
  - APHASIA [None]
